FAERS Safety Report 13212303 (Version 1)
Quarter: 2017Q1

REPORT INFORMATION
  Report Type: Spontaneous
  Country: FR (occurrence: FR)
  Receive Date: 20170210
  Receipt Date: 20170210
  Transmission Date: 20170428
  Serious: Yes (Death)
  Sender: FDA-Public Use
  Company Number: FR-FRESENIUS KABI-FK201701060

PATIENT
  Age: 88 Year
  Sex: Female

DRUGS (11)
  1. TEMERIT [Concomitant]
     Active Substance: NEBIVOLOL
     Indication: HYPERTENSION
  2. VALIUM [Suspect]
     Active Substance: DIAZEPAM
     Indication: CLONUS
     Route: 042
     Dates: start: 20170106, end: 20170106
  3. LIDOCAINE AGUETTANT [Suspect]
     Active Substance: LIDOCAINE
     Indication: LOCAL ANAESTHESIA
     Route: 030
     Dates: start: 20170106, end: 20170106
  4. FORSTEO [Concomitant]
     Active Substance: TERIPARATIDE
     Indication: OSTEOPOROSIS
  5. MIANSERINE [Concomitant]
     Active Substance: MIANSERIN HYDROCHLORIDE
  6. TARDYFERON [Concomitant]
     Active Substance: FERROUS SULFATE
  7. HYDREA [Concomitant]
     Active Substance: HYDROXYUREA
     Indication: ESSENTIAL THROMBOCYTHAEMIA
  8. ZYLORIC [Concomitant]
     Active Substance: ALLOPURINOL
  9. UVEDOSE [Concomitant]
     Active Substance: CHOLECALCIFEROL
  10. ROPIVACAINE FRESENIUS KABI 7.5MG/ML [Suspect]
     Active Substance: ROPIVACAINE HYDROCHLORIDE
     Indication: LOCAL ANAESTHESIA
     Route: 030
     Dates: start: 20170106, end: 20170106
  11. PLAVIX [Concomitant]
     Active Substance: CLOPIDOGREL BISULFATE

REACTIONS (5)
  - Cardiac arrest [Fatal]
  - Clonus [Fatal]
  - Myoclonus [Fatal]
  - Loss of consciousness [Fatal]
  - Respiratory arrest [Fatal]

NARRATIVE: CASE EVENT DATE: 20170106
